FAERS Safety Report 16018136 (Version 1)
Quarter: 2019Q1

REPORT INFORMATION
  Report Type: Spontaneous
  Country: US (occurrence: US)
  Receive Date: 20190201
  Receipt Date: 20190201
  Transmission Date: 20190418
  Serious: No
  Sender: FDA-Public Use
  Company Number: None

PATIENT
  Age: 64 Year
  Sex: Female

DRUGS (1)
  1. STELARA [Suspect]
     Active Substance: USTEKINUMAB
     Indication: PSORIASIS
     Dosage: ?          OTHER FREQUENCY:DAY 28 AS DIR ;?
     Route: 058
     Dates: start: 201810

REACTIONS (4)
  - Product dispensing error [None]
  - External ear pain [None]
  - Incorrect dose administered [None]
  - Rash [None]
